FAERS Safety Report 16179995 (Version 1)
Quarter: 2019Q2

REPORT INFORMATION
  Report Type: Spontaneous
  Country: US (occurrence: US)
  Receive Date: 20190409
  Receipt Date: 20190409
  Transmission Date: 20190711
  Serious: Yes (Other)
  Sender: FDA-Public Use
  Company Number: None

PATIENT
  Age: 20 Year
  Sex: Female
  Weight: 70.4 kg

DRUGS (1)
  1. EMGALITY [Suspect]
     Active Substance: GALCANEZUMAB-GNLM
     Indication: MIGRAINE WITHOUT AURA
     Dosage: ?          OTHER FREQUENCY:ONCE;?
     Route: 058
     Dates: start: 20190405, end: 20190405

REACTIONS (6)
  - Feeling abnormal [None]
  - Speech disorder [None]
  - Musculoskeletal stiffness [None]
  - Musculoskeletal disorder [None]
  - Thinking abnormal [None]
  - Cognitive disorder [None]

NARRATIVE: CASE EVENT DATE: 20190405
